FAERS Safety Report 10168714 (Version 1)
Quarter: 2014Q2

REPORT INFORMATION
  Report Type: Spontaneous
  Country: US (occurrence: None)
  Receive Date: 20140512
  Receipt Date: 20140512
  Transmission Date: 20141212
  Serious: No
  Sender: FDA-Public Use
  Company Number: None

PATIENT
  Age: 31 Year
  Sex: Female
  Weight: 52.16 kg

DRUGS (1)
  1. MIRVASO [Suspect]
     Indication: ROSACEA
     Dates: start: 20140501, end: 20140506

REACTIONS (2)
  - Erythema [None]
  - Condition aggravated [None]
